FAERS Safety Report 16766547 (Version 2)
Quarter: 2019Q3

REPORT INFORMATION
  Report Type: Spontaneous
  Country: US (occurrence: US)
  Receive Date: 20190903
  Receipt Date: 20190923
  Transmission Date: 20191005
  Serious: No
  Sender: FDA-Public Use
  Company Number: US-PFIZER INC-2019372795

PATIENT
  Age: 65 Year
  Sex: Male
  Weight: 72.56 kg

DRUGS (2)
  1. CHANTIX [Suspect]
     Active Substance: VARENICLINE TARTRATE
     Indication: SMOKING CESSATION THERAPY
     Dosage: 0.5 MG, DAILY
     Dates: start: 2018
  2. CHANTIX [Suspect]
     Active Substance: VARENICLINE TARTRATE
     Dosage: UNK, DAILY (1 OR 2 1MG TABLETS DAILY)
     Dates: end: 2019

REACTIONS (2)
  - Abnormal dreams [Unknown]
  - Drug ineffective [Unknown]
